FAERS Safety Report 8417471-6 (Version None)
Quarter: 2012Q2

REPORT INFORMATION
  Report Type: 
  Country: None (occurrence: None)
  Receive Date: 20120606
  Receipt Date: 20120529
  Transmission Date: 20120825
  Serious: Yes (Hospitalization)
  Sender: FDA-Public Use
  Company Number: IT-FRI-1000030427

PATIENT
  Sex: Male

DRUGS (6)
  1. MADOPAR [Suspect]
     Dosage: 250 MG
     Route: 048
     Dates: start: 20110328, end: 20120327
  2. NEUPRO [Suspect]
     Dosage: 2 MG
     Route: 062
     Dates: start: 20110328, end: 20120327
  3. IRON SULFATETHIAMIN COMPOUND TAB [Concomitant]
  4. MEMANTINE HCL [Suspect]
     Dosage: 1 DF
     Route: 048
     Dates: start: 20110328, end: 20120327
  5. RASAGILINE [Suspect]
     Dosage: 1 MG
     Route: 048
     Dates: start: 20110328, end: 20120327
  6. DONEPEZIL HYDRCHLORIDE [Suspect]
     Route: 048
     Dates: start: 20110328, end: 20120327

REACTIONS (1)
  - SOPOR [None]
